FAERS Safety Report 11572307 (Version 1)
Quarter: 2015Q3

REPORT INFORMATION
  Report Type: Spontaneous
  Country: FR (occurrence: FR)
  Receive Date: 20150929
  Receipt Date: 20150929
  Transmission Date: 20151125
  Serious: Yes (Hospitalization)
  Sender: FDA-Public Use
  Company Number: FR-CORCEPT THERAPEUTICS INC.-FR-2015CRT000607

PATIENT
  Age: 27 Year
  Sex: Female
  Weight: 60 kg

DRUGS (2)
  1. MIFEPRISTONE [Suspect]
     Active Substance: MIFEPRISTONE
     Indication: ABORTION INDUCED
     Dosage: 600 MG, QD
     Route: 048
     Dates: start: 20111010, end: 20111010
  2. CYTOTEC [Suspect]
     Active Substance: MISOPROSTOL
     Indication: ABORTION INDUCED
     Dosage: 800 ?G, QD
     Route: 048
     Dates: start: 20111012, end: 20111012

REACTIONS (6)
  - Induced abortion failed [Recovered/Resolved]
  - Incorrect dose administered [Unknown]
  - Drug administration error [Unknown]
  - Vaginal haemorrhage [Recovered/Resolved]
  - Haemorrhagic anaemia [Unknown]
  - Product use issue [Unknown]

NARRATIVE: CASE EVENT DATE: 20111012
